FAERS Safety Report 15481976 (Version 1)
Quarter: 2018Q4

REPORT INFORMATION
  Report Type: Spontaneous
  Country: BR (occurrence: BR)
  Receive Date: 20181010
  Receipt Date: 20181010
  Transmission Date: 20190205
  Serious: Yes (Other)
  Sender: FDA-Public Use
  Company Number: BR-TORRENT-00004645

PATIENT
  Age: 22 Year
  Sex: Male
  Weight: 70 kg

DRUGS (2)
  1. ESPRAN [Suspect]
     Active Substance: ESCITALOPRAM OXALATE
     Indication: PANIC DISORDER
     Dosage: ONE TABLET DAILY
     Route: 048
     Dates: start: 20180726, end: 20180927
  2. RIVOTRIL [Concomitant]
     Active Substance: CLONAZEPAM
     Indication: ANXIETY
     Dosage: 0.25 MG TO 1.5 MG ONCE OR TWICE A WEEK

REACTIONS (10)
  - Insomnia [Unknown]
  - Anxiety [Unknown]
  - Agitation [Unknown]
  - Wrong technique in product usage process [Unknown]
  - Hypertension [Unknown]
  - Panic reaction [Unknown]
  - Obsessive thoughts [Unknown]
  - Apparent death [Unknown]
  - Feeling of relaxation [Unknown]
  - Crying [Unknown]

NARRATIVE: CASE EVENT DATE: 201808
